FAERS Safety Report 8833404 (Version 1)
Quarter: 2012Q4

REPORT INFORMATION
  Report Type: 
  Country: FR (occurrence: FR)
  Receive Date: 20121010
  Receipt Date: 20121010
  Transmission Date: 20130627
  Serious: Yes (Hospitalization)
  Sender: FDA-Public Use
  Company Number: FR-PFIZER INC-2012247019

PATIENT
  Age: 68 Year
  Sex: Male

DRUGS (4)
  1. ZYVOXID [Suspect]
     Indication: MYCOBACTERIAL INFECTION
     Dosage: UNK
     Dates: start: 20120727, end: 20120731
  2. ZECLAR [Suspect]
     Indication: MYCOBACTERIAL INFECTION
     Dosage: UNK
     Route: 048
     Dates: start: 20120627
  3. TIGECYCLINE [Concomitant]
  4. TOBRAMYCIN [Concomitant]

REACTIONS (1)
  - Rash maculo-papular [Recovered/Resolved]
